FAERS Safety Report 7248878-0 (Version None)
Quarter: 2011Q1

REPORT INFORMATION
  Report Type: 
  Country: None (occurrence: None)
  Receive Date: 20110128
  Receipt Date: 20110120
  Transmission Date: 20110831
  Serious: Yes (Congenital Anomaly)
  Sender: FDA-Public Use
  Company Number: FR-ASTELLAS-2011EU000346

PATIENT
  Sex: Female

DRUGS (7)
  1. CELLCEPT [Suspect]
     Indication: DRUG EXPOSURE DURING PREGNANCY
     Dosage: 500 MG, DAILY
     Route: 064
  2. PROGRAF [Suspect]
     Indication: DRUG EXPOSURE DURING PREGNANCY
     Dosage: 2.5 G , DAILY
     Route: 064
     Dates: end: 20090515
  3. INNOHEP [Suspect]
     Indication: DRUG EXPOSURE DURING PREGNANCY
     Dosage: 0.5 ML, UNKNOWN/D
     Route: 064
     Dates: start: 20000101
  4. PENTASA [Suspect]
     Indication: DRUG EXPOSURE DURING PREGNANCY
     Dosage: 1 CI,  DAILY
     Route: 064
     Dates: start: 20090223, end: 20090515
  5. ASPEGIC 325 [Suspect]
     Indication: DRUG EXPOSURE DURING PREGNANCY
     Dosage: 250 MEQ/ML, DAILY
     Route: 064
     Dates: end: 20090501
  6. DELURSAN [Suspect]
     Indication: DRUG EXPOSURE DURING PREGNANCY
     Dosage: 200 MG, QID
     Route: 064
     Dates: end: 20090515
  7. CALTRATE [Suspect]
     Indication: DRUG EXPOSURE DURING PREGNANCY
     Dosage: 1 DF, DAILY
     Route: 064
     Dates: end: 20090515

REACTIONS (1)
  - DYSMORPHISM [None]
